FAERS Safety Report 24432973 (Version 1)
Quarter: 2024Q4

REPORT INFORMATION
  Report Type: Spontaneous
  Country: US (occurrence: US)
  Receive Date: 20241014
  Receipt Date: 20241014
  Transmission Date: 20250114
  Serious: Yes (Disabling, Other)
  Sender: CB FLEET
  Company Number: US-PRESTIGE-202410-US-003277

PATIENT
  Sex: Male

DRUGS (1)
  1. CLEAR EYES REDNESS RELIEF [Suspect]
     Active Substance: GLYCERIN\NAPHAZOLINE HYDROCHLORIDE
     Indication: Product used for unknown indication
     Dosage: 2 DROPS IN RIGHT EYE
     Route: 047

REACTIONS (4)
  - Ulcerative keratitis [Unknown]
  - Blindness unilateral [Not Recovered/Not Resolved]
  - Ocular hyperaemia [Unknown]
  - Eye irritation [Unknown]
